FAERS Safety Report 5246071-4 (Version None)
Quarter: 2007Q1

REPORT INFORMATION
  Report Type: 
  Country: None (occurrence: None)
  Receive Date: 20061201
  Receipt Date: 20060809
  Transmission Date: 20070707
  Serious: No
  Sender: FDA-Public Use
  Company Number: 2006PV019112

PATIENT
  Age: 49 Year
  Sex: Female
  Weight: 149.687 kg

DRUGS (29)
  1. BYETTA [Suspect]
     Indication: DIABETES MELLITUS NON-INSULIN-DEPENDENT
     Dosage: 5 MCG;BID;SC
     Route: 058
     Dates: start: 20060719, end: 20060729
  2. NEXIUM [Concomitant]
  3. DIOVAN [Concomitant]
  4. CLONIDINE [Concomitant]
  5. HYDROCHLOROTHIAZIDE [Concomitant]
  6. LIPITOR [Concomitant]
  7. LEXAPRO [Concomitant]
  8. AMITRIPTYLINE HCL [Concomitant]
  9. XANAX [Concomitant]
  10. PREMARIN [Concomitant]
  11. GLUCOPHAGE [Concomitant]
  12. ZYRTEC [Concomitant]
  13. SINGULAIR [Concomitant]
  14. POTASSIUM ACETATE [Concomitant]
  15. DETROL [Concomitant]
  16. ALFEN DM [Concomitant]
  17. ALBUTEROL [Concomitant]
  18. DARVOCET [Concomitant]
  19. PROBENECID [Concomitant]
  20. DIFLUCAN [Concomitant]
  21. ASCORBIC ACID [Concomitant]
  22. VITAMIN E [Concomitant]
  23. ASPIRIN [Concomitant]
  24. ACIDPHOLUS [Concomitant]
  25. MULTI-VITAMINS [Concomitant]
  26. BILBERRY WITH LUTEN [Concomitant]
  27. OLIVE LEAVES EXTRACT [Concomitant]
  28. AREDES EYE CAPS [Concomitant]
  29. OREGENO OIL COMPLEX [Concomitant]

REACTIONS (10)
  - ANXIETY [None]
  - BLOOD GLUCOSE INCREASED [None]
  - DECREASED APPETITE [None]
  - FATIGUE [None]
  - GASTROOESOPHAGEAL REFLUX DISEASE [None]
  - HEART RATE INCREASED [None]
  - NAUSEA [None]
  - ORAL PRURITUS [None]
  - RETCHING [None]
  - THROAT TIGHTNESS [None]
